FAERS Safety Report 4728155-X (Version None)
Quarter: 2005Q3

REPORT INFORMATION
  Report Type: 
  Country: None (occurrence: None)
  Receive Date: 20050728
  Receipt Date: 20050728
  Transmission Date: 20060218
  Serious: No
  Sender: FDA-Public Use
  Company Number: None

PATIENT

DRUGS (1)
  1. MEDROXYPROGESTERONE [Suspect]

REACTIONS (2)
  - BURNING SENSATION [None]
  - NASOPHARYNGEAL DISORDER [None]
